FAERS Safety Report 4278847-4 (Version None)
Quarter: 2004Q1

REPORT INFORMATION
  Report Type: 
  Country: None (occurrence: None)
  Receive Date: 20040111
  Receipt Date: 20040114
  Transmission Date: 20041129
  Serious: Yes (Death)
  Sender: FDA-Public Use
  Company Number: 163-20785-03120157

PATIENT
  Age: 51 Year
  Sex: Male

DRUGS (1)
  1. THALOMID [Suspect]
     Indication: PANCREATIC CARCINOMA
     Dosage: 150 MG, AT BEDTIME, ORAL
     Route: 048
     Dates: start: 20030707, end: 20030801

REACTIONS (4)
  - MALIGNANT NEOPLASM PROGRESSION [None]
  - METASTASIS [None]
  - PANCREATIC CARCINOMA [None]
  - PANCREATIC CARCINOMA METASTATIC [None]
